FAERS Safety Report 7915869-3 (Version None)
Quarter: 2011Q4

REPORT INFORMATION
  Report Type: 
  Country: None (occurrence: None)
  Receive Date: 20111115
  Receipt Date: 20111111
  Transmission Date: 20120403
  Serious: Yes (Death, Hospitalization)
  Sender: FDA-Public Use
  Company Number: US-AMGEN-USASP2011014138

PATIENT
  Age: 76 Year
  Sex: Male

DRUGS (2)
  1. NPLATE [Suspect]
     Indication: IDIOPATHIC THROMBOCYTOPENIC PURPURA
     Dosage: 3 MUG/KG, UNK
     Dates: start: 20100913, end: 20100927
  2. CORTICOSTEROIDS [Concomitant]
     Indication: IDIOPATHIC THROMBOCYTOPENIC PURPURA

REACTIONS (5)
  - SARCOMA [None]
  - HEART TRANSPLANT [None]
  - IDIOPATHIC THROMBOCYTOPENIC PURPURA [None]
  - ATRIAL FIBRILLATION [None]
  - MALNUTRITION [None]
